FAERS Safety Report 24136046 (Version 2)
Quarter: 2024Q3

REPORT INFORMATION
  Report Type: Spontaneous
  Country: HU (occurrence: HU)
  Receive Date: 20240725
  Receipt Date: 20240802
  Transmission Date: 20241016
  Serious: Yes (Death, Life-Threatening, Other)
  Sender: BAUSCH AND LOMB
  Company Number: HU-MYLANLABS-2012S1016663

PATIENT
  Age: 29 Year
  Sex: Female

DRUGS (15)
  1. DEXAMETHASONE [Suspect]
     Active Substance: DEXAMETHASONE
     Indication: Non-Hodgkin^s lymphoma stage IV
     Dosage: 2 CYCLES OF DHAP
     Route: 065
     Dates: start: 2006
  2. GEMCITABINE [Suspect]
     Active Substance: GEMCITABINE
     Indication: Hodgkin^s disease
     Dosage: IGEV WITH RITUXIMAB
     Route: 065
     Dates: start: 2007
  3. IFOSFAMIDE [Suspect]
     Active Substance: IFOSFAMIDE
     Indication: Non-Hodgkin^s lymphoma stage IV
     Dosage: 2 CYCLES OF ICE, RECEIVED IFOSFAMIDE 2-CYCLE
     Route: 065
     Dates: start: 2007
  4. IFOSFAMIDE [Suspect]
     Active Substance: IFOSFAMIDE
     Dosage: IGEV
     Route: 065
     Dates: start: 2006
  5. CYTARABINE [Suspect]
     Active Substance: CYTARABINE
     Indication: Non-Hodgkin^s lymphoma stage IV
     Dosage: 2 CYCLES OF DHAP
     Route: 065
     Dates: start: 2006
  6. VINBLASTINE [Suspect]
     Active Substance: VINBLASTINE
     Indication: Non-Hodgkin^s lymphoma stage IV
     Dosage: EIGHT CYCLES OF AVBD, RECEIVED BLEOMYCIN 8-CYCLE
     Route: 065
     Dates: start: 2006
  7. DOXORUBICIN [Suspect]
     Active Substance: DOXORUBICIN
     Indication: Non-Hodgkin^s lymphoma stage IV
     Dosage: EIGHT CYCLES OF AVBD, RECEIVED DOXORUBICIN 8-CYCLE
     Route: 065
     Dates: start: 2006
  8. DACARBAZINE [Suspect]
     Active Substance: DACARBAZINE
     Indication: Non-Hodgkin^s lymphoma stage IV
     Dosage: EIGHT CYCLES OF AVBD, RECEIVED BLEOMYCIN 8-CYCLE
     Route: 065
     Dates: start: 2006
  9. BLEOMYCIN [Suspect]
     Active Substance: BLEOMYCIN SULFATE
     Indication: Non-Hodgkin^s lymphoma stage IV
     Dosage: EIGHT CYCLES OF AVBD, RECEIVED BLEOMYCIN 8-CYCLE
     Route: 065
     Dates: start: 2006
  10. CISPLATIN [Suspect]
     Active Substance: CISPLATIN
     Indication: Non-Hodgkin^s lymphoma stage IV
     Dosage: 2 CYCLES OF DHAP
     Route: 065
     Dates: start: 2006
  11. RITUXIMAB [Suspect]
     Active Substance: RITUXIMAB
     Indication: Non-Hodgkin^s lymphoma stage IV
     Dosage: IGEV WITH RITUXIMAB
     Route: 065
     Dates: start: 2007
  12. VINORELBINE [Suspect]
     Active Substance: VINORELBINE TARTRATE
     Indication: Non-Hodgkin^s lymphoma stage IV
     Dosage: IGEV WITH RITUXIMAB
     Route: 065
     Dates: start: 2007
  13. CARBOPLATIN [Suspect]
     Active Substance: CARBOPLATIN
     Indication: Non-Hodgkin^s lymphoma stage IV
     Dosage: 2 CYCLES OF ICE, RECEIVED CARBOPLATIN 2-CYCLE
     Route: 065
     Dates: start: 2006
  14. ETOPOSIDE [Suspect]
     Active Substance: ETOPOSIDE
     Indication: Non-Hodgkin^s lymphoma stage IV
     Dosage: 2 CYCLES OF ICE
     Route: 065
     Dates: start: 2007
  15. ETOPOSIDE [Suspect]
     Active Substance: ETOPOSIDE
     Dosage: RECEIVED ETOPOSIDE 2-CYCLE, IGEV
     Route: 065
     Dates: start: 2006

REACTIONS (7)
  - Respiratory failure [Fatal]
  - Haemophagocytic lymphohistiocytosis [Fatal]
  - Cytomegalovirus infection [Fatal]
  - Pneumonia [Fatal]
  - Oophoritis [Fatal]
  - Pancytopenia [Unknown]
  - Drug ineffective [Unknown]

NARRATIVE: CASE EVENT DATE: 20070101
